FAERS Safety Report 6596299-6 (Version None)
Quarter: 2010Q1

REPORT INFORMATION
  Report Type: 
  Country: None (occurrence: None)
  Receive Date: 20100223
  Receipt Date: 20100215
  Transmission Date: 20100710
  Serious: Yes (Other)
  Sender: FDA-Public Use
  Company Number: US-PFIZER INC-2010020904

PATIENT

DRUGS (1)
  1. XALATAN [Suspect]
     Dosage: UNK

REACTIONS (1)
  - PALPITATIONS [None]
